FAERS Safety Report 5213149-0 (Version None)
Quarter: 2007Q1

REPORT INFORMATION
  Report Type: 
  Country: None (occurrence: None)
  Receive Date: 20070116
  Receipt Date: 20070110
  Transmission Date: 20070707
  Serious: Yes (Death)
  Sender: FDA-Public Use
  Company Number: S07-USA-00118-01

PATIENT
  Age: 61 Year
  Sex: Male

DRUGS (3)
  1. LEXAPRO [Suspect]
     Indication: DEPRESSION
     Dosage: 10 MG QD PO
     Route: 048
     Dates: start: 20061228, end: 20070106
  2. XANAX [Suspect]
     Dates: start: 20070106, end: 20070106
  3. XANAX [Concomitant]

REACTIONS (4)
  - CARBON MONOXIDE POISONING [None]
  - COMPLETED SUICIDE [None]
  - INJURY ASPHYXIATION [None]
  - OVERDOSE [None]
